FAERS Safety Report 18354871 (Version 2)
Quarter: 2021Q1

REPORT INFORMATION
  Report Type: Spontaneous
  Country: CA (occurrence: CA)
  Receive Date: 20201007
  Receipt Date: 20210224
  Transmission Date: 20210419
  Serious: Yes (Other)
  Sender: FDA-Public Use
  Company Number: CA-ROCHE-2688205

PATIENT
  Age: 44 Year
  Sex: Female

DRUGS (6)
  1. DEXILANT [Concomitant]
     Active Substance: DEXLANSOPRAZOLE
  2. SYNTHROID [Concomitant]
     Active Substance: LEVOTHYROXINE SODIUM
     Route: 048
  3. APO?MEDROXY [Concomitant]
     Active Substance: MEDROXYPROGESTERONE ACETATE
  4. SOMATROPIN. [Suspect]
     Active Substance: SOMATROPIN
     Indication: GROWTH HORMONE DEFICIENCY
     Route: 058
  5. DESOXIMETASONE. [Concomitant]
     Active Substance: DESOXIMETASONE
     Route: 048
  6. ESTRACE [Concomitant]
     Active Substance: ESTRADIOL

REACTIONS (12)
  - Bone density decreased [Not Recovered/Not Resolved]
  - Injection site pain [Not Recovered/Not Resolved]
  - Product dose omission issue [Unknown]
  - Device use error [Unknown]
  - Peripheral swelling [Not Recovered/Not Resolved]
  - Osteopenia [Not Recovered/Not Resolved]
  - Pituitary tumour recurrent [Not Recovered/Not Resolved]
  - Brain neoplasm [Not Recovered/Not Resolved]
  - Contusion [Not Recovered/Not Resolved]
  - Device issue [Unknown]
  - Scoliosis [Not Recovered/Not Resolved]
  - Thrombosis [Not Recovered/Not Resolved]
